FAERS Safety Report 5494446-0 (Version None)
Quarter: 2007Q4

REPORT INFORMATION
  Report Type: 
  Country: None (occurrence: None)
  Receive Date: 20071022
  Receipt Date: 20071005
  Transmission Date: 20080405
  Serious: Yes (Life-Threatening, Hospitalization)
  Sender: FDA-Public Use
  Company Number: MW-AMAG-2007-0001

PATIENT

DRUGS (1)
  1. LUMERIN/FERUMOXSIL GUERBET S.A. [Suspect]
     Indication: NUCLEAR MAGNETIC RESONANCE IMAGING
     Dosage: 300 ML, ORAL
     Route: 048
     Dates: start: 20071002, end: 20071002

REACTIONS (6)
  - CARDIOVASCULAR DISORDER [None]
  - DYSPNOEA [None]
  - ERYTHEMA [None]
  - TACHYCARDIA [None]
  - TREMOR [None]
  - URTICARIA [None]
